FAERS Safety Report 23070919 (Version 4)
Quarter: 2023Q4

REPORT INFORMATION
  Report Type: Report from Study
  Country: US (occurrence: US)
  Receive Date: 20231016
  Receipt Date: 20231222
  Transmission Date: 20240110
  Serious: No
  Sender: FDA-Public Use
  Company Number: US-002147023-NVSC2023US222274

PATIENT
  Sex: Male

DRUGS (2)
  1. KESIMPTA [Suspect]
     Active Substance: OFATUMUMAB
     Indication: Multiple sclerosis
     Dosage: 0.4 ML, QW, (20 MG)
     Route: 030
     Dates: start: 20231013
  2. KESIMPTA [Suspect]
     Active Substance: OFATUMUMAB
     Dosage: 20 MG, QW
     Route: 058

REACTIONS (5)
  - Dizziness [Recovered/Resolved]
  - Chills [Unknown]
  - Myalgia [Unknown]
  - Influenza like illness [Recovered/Resolved]
  - Incorrect route of product administration [Unknown]
